FAERS Safety Report 7343937-6 (Version None)
Quarter: 2011Q1

REPORT INFORMATION
  Report Type: 
  Country: None (occurrence: None)
  Receive Date: 20110310
  Receipt Date: 20100211
  Transmission Date: 20110831
  Serious: No
  Sender: FDA-Public Use
  Company Number: A0844464A

PATIENT
  Age: 34 Year
  Sex: Female

DRUGS (2)
  1. NICORETTE [Suspect]
  2. NICODERM CQ [Suspect]

REACTIONS (2)
  - NICOTINE DEPENDENCE [None]
  - DRUG ADMINISTRATION ERROR [None]
